FAERS Safety Report 6276587-3 (Version None)
Quarter: 2009Q3

REPORT INFORMATION
  Report Type: 
  Country: None (occurrence: None)
  Receive Date: 20090722
  Receipt Date: 20080515
  Transmission Date: 20100115
  Serious: No
  Sender: FDA-Public Use
  Company Number: US-BRISTOL-MYERS SQUIBB COMPANY-14193197

PATIENT
  Age: 80 Year
  Sex: Female
  Weight: 63 kg

DRUGS (10)
  1. COUMADIN [Suspect]
     Indication: ATRIAL FIBRILLATION
     Dates: start: 20080101
  2. TOPROL-XL [Concomitant]
  3. LANOXIN [Concomitant]
  4. TIMOPTIC [Concomitant]
  5. CHLORELLA [Concomitant]
  6. VITAMIN B COMPLEX CAP [Concomitant]
  7. ASCORBIC ACID [Concomitant]
  8. BETACAROTENE [Concomitant]
  9. QUERCETIN [Concomitant]
  10. COD LIVER OIL [Concomitant]

REACTIONS (1)
  - INTERNATIONAL NORMALISED RATIO FLUCTUATION [None]
